FAERS Safety Report 7296127-X (Version None)
Quarter: 2011Q1

REPORT INFORMATION
  Report Type: 
  Country: None (occurrence: None)
  Receive Date: 20110216
  Receipt Date: 20110202
  Transmission Date: 20110831
  Serious: Yes (Other)
  Sender: FDA-Public Use
  Company Number: AT-CELGENEUS-009-20785-11020342

PATIENT
  Sex: Female

DRUGS (4)
  1. PREGYLATED LIPOSOMAL DOXORUBICIN [Concomitant]
     Route: 065
  2. PREDNISONE TAB [Concomitant]
     Route: 065
  3. PREDNISOLONE [Concomitant]
     Route: 065
  4. THALIDOMIDE [Suspect]
     Indication: MULTIPLE MYELOMA
     Route: 048
     Dates: start: 20100601, end: 20100901

REACTIONS (2)
  - CARDIAC DISORDER [None]
  - RENAL FAILURE [None]
